FAERS Safety Report 6183986-7 (Version None)
Quarter: 2009Q2

REPORT INFORMATION
  Report Type: 
  Country: None (occurrence: None)
  Receive Date: 20090506
  Receipt Date: 20090506
  Transmission Date: 20091009
  Serious: Yes (Hospitalization)
  Sender: FDA-Public Use
  Company Number: None

PATIENT
  Age: 26 Year
  Sex: Male
  Weight: 90.91 kg

DRUGS (1)
  1. TRAZODONE HCL [Suspect]
     Dosage: 100 MG HS PO
     Route: 048
     Dates: start: 20090319, end: 20090327

REACTIONS (1)
  - PRIAPISM [None]
